FAERS Safety Report 5140852-3 (Version None)
Quarter: 2006Q4

REPORT INFORMATION
  Report Type: 
  Country: None (occurrence: None)
  Receive Date: 20061025
  Receipt Date: 20061012
  Transmission Date: 20070319
  Serious: Yes (Hospitalization, Other)
  Sender: FDA-Public Use
  Company Number: 2006109057

PATIENT
  Age: 29 Year
  Sex: Male
  Weight: 36.2878 kg

DRUGS (4)
  1. VFEND [Suspect]
     Indication: BRONCHOPULMONARY ASPERGILLOSIS
     Dosage: (50 MG, INTRAVENOUS
     Route: 042
     Dates: start: 20060801, end: 20060101
  2. ERAXIS [Suspect]
     Indication: BRONCHOPULMONARY ASPERGILLOSIS
     Dates: start: 20060101
  3. TOTAL PARENTERAL NUTRITION (TOTAL PARENTERAL NUTRITION) [Concomitant]
  4. REMODULIN (TREPROSTINOL) [Concomitant]

REACTIONS (2)
  - BLOOD UREA INCREASED [None]
  - DEHYDRATION [None]
